FAERS Safety Report 13204695 (Version 4)
Quarter: 2017Q2

REPORT INFORMATION
  Report Type: Spontaneous
  Country: US (occurrence: US)
  Receive Date: 20170209
  Receipt Date: 20170404
  Transmission Date: 20170830
  Serious: No
  Sender: FDA-Public Use
  Company Number: US-GLAXOSMITHKLINE-US2017018196

PATIENT
  Age: 50 Year
  Sex: Male

DRUGS (10)
  1. ANORO ELLIPTA [Suspect]
     Active Substance: UMECLIDINIUM BROMIDE\VILANTEROL TRIFENATATE
     Indication: ASTHMA
     Dosage: 1 PUFF(S), 1D
  2. DULERA [Suspect]
     Active Substance: FORMOTEROL FUMARATE DIHYDRATE\MOMETASONE FUROATE
     Indication: PRODUCT USED FOR UNKNOWN INDICATION
     Dosage: UNK
  3. VITAMIN C [Concomitant]
     Active Substance: ASCORBIC ACID
  4. ANORO ELLIPTA [Suspect]
     Active Substance: UMECLIDINIUM BROMIDE\VILANTEROL TRIFENATATE
     Indication: CHRONIC OBSTRUCTIVE PULMONARY DISEASE
     Dosage: 1 PUFF(S), 1D
     Route: 055
     Dates: start: 201701
  5. ALBUTEROL. [Concomitant]
     Active Substance: ALBUTEROL
  6. OXYGEN. [Concomitant]
     Active Substance: OXYGEN
  7. PAROXETINE. [Suspect]
     Active Substance: PAROXETINE
     Indication: DEPRESSION
     Dosage: 1 DF, 1D
  8. CALCIUM [Concomitant]
     Active Substance: CALCIUM
  9. DIOVAN [Concomitant]
     Active Substance: VALSARTAN
  10. CLONAZEPAM. [Concomitant]
     Active Substance: CLONAZEPAM

REACTIONS (17)
  - Constipation [Not Recovered/Not Resolved]
  - Oxygen saturation decreased [Unknown]
  - Drug dose omission [Unknown]
  - Borderline glaucoma [Not Recovered/Not Resolved]
  - Pallor [Unknown]
  - Therapeutic response unexpected [Unknown]
  - Eye disorder [Not Recovered/Not Resolved]
  - Urine flow decreased [Recovering/Resolving]
  - Chest pain [Recovered/Resolved]
  - Back pain [Unknown]
  - Weight increased [Not Recovered/Not Resolved]
  - Product use in unapproved indication [Unknown]
  - Asthenia [Recovered/Resolved]
  - Alopecia [Unknown]
  - Skin discolouration [Unknown]
  - Genital infection fungal [Recovering/Resolving]
  - Blepharospasm [Not Recovered/Not Resolved]

NARRATIVE: CASE EVENT DATE: 201701
